FAERS Safety Report 6249613-5 (Version None)
Quarter: 2009Q2

REPORT INFORMATION
  Report Type: 
  Country: None (occurrence: None)
  Receive Date: 20090629
  Receipt Date: 20090622
  Transmission Date: 20091009
  Serious: Yes (Hospitalization, Other)
  Sender: FDA-Public Use
  Company Number: US-ELI_LILLY_AND_COMPANY-US200906005058

PATIENT
  Sex: Male

DRUGS (4)
  1. HUMALOG [Suspect]
     Indication: TYPE 1 DIABETES MELLITUS
  2. HUMULIN R [Suspect]
     Indication: TYPE 1 DIABETES MELLITUS
  3. HUMULIN N [Suspect]
     Indication: TYPE 1 DIABETES MELLITUS
  4. LANTUS [Concomitant]

REACTIONS (13)
  - BLOOD GLUCOSE DECREASED [None]
  - BLOOD GLUCOSE INCREASED [None]
  - DIZZINESS [None]
  - EPISTAXIS [None]
  - FALL [None]
  - GLAUCOMA [None]
  - HIP FRACTURE [None]
  - HYPERHIDROSIS [None]
  - HYPOACUSIS [None]
  - HYPOGLYCAEMIC UNCONSCIOUSNESS [None]
  - INCORRECT DOSE ADMINISTERED [None]
  - LOCALISED INFECTION [None]
  - MUSCULOSKELETAL CHEST PAIN [None]
